FAERS Safety Report 6173961-0 (Version None)
Quarter: 2009Q2

REPORT INFORMATION
  Report Type: 
  Country: None (occurrence: None)
  Receive Date: 20090429
  Receipt Date: 20090429
  Transmission Date: 20091009
  Serious: Yes (Other)
  Sender: FDA-Public Use
  Company Number: None

PATIENT
  Age: 15 Year
  Sex: Male

DRUGS (1)
  1. PERFLUTREN [Suspect]
     Indication: CORNEAL OEDEMA
     Dosage: 0.2ML OF 14% PERFLUTREN, INTRAOCULAR
     Route: 031

REACTIONS (3)
  - GLAUCOMA [None]
  - INTRAOCULAR PRESSURE INCREASED [None]
  - PUPIL FIXED [None]
